FAERS Safety Report 24847387 (Version 1)
Quarter: 2025Q1

REPORT INFORMATION
  Report Type: Spontaneous
  Country: US (occurrence: US)
  Receive Date: 20250116
  Receipt Date: 20250116
  Transmission Date: 20250408
  Serious: No
  Sender: SPECGX
  Company Number: US-SPECGX-T202400773

PATIENT
  Sex: Male
  Weight: 118 kg

DRUGS (9)
  1. HYDROMORPHONE [Suspect]
     Active Substance: HYDROMORPHONE
     Indication: Headache
     Route: 065
     Dates: start: 202304
  2. HYDROMORPHONE [Suspect]
     Active Substance: HYDROMORPHONE
     Dosage: 2 MILLIGRAM, BID
     Route: 048
     Dates: start: 20240311
  3. DEXAMETHASONE [Concomitant]
     Active Substance: DEXAMETHASONE
     Indication: Headache
     Dosage: 4 MILLIGRAM, BID (ONE TABLET AT 08:00 AM AND 01:00 PM)
     Route: 048
     Dates: start: 202304
  4. LEVETIRACETAM [Concomitant]
     Active Substance: LEVETIRACETAM
     Indication: Headache
     Dosage: 500 MILLIGRAM, BID
     Route: 065
  5. CYMBALTA [Concomitant]
     Active Substance: DULOXETINE HYDROCHLORIDE
     Indication: Headache
     Dosage: 40 MILLIGRAM, QD
     Route: 065
  6. TRAZODONE [Concomitant]
     Active Substance: TRAZODONE HYDROCHLORIDE
     Indication: Insomnia
     Dosage: 300 MILLIGRAM, QHS
     Route: 065
  7. COREG [Concomitant]
     Active Substance: CARVEDILOL
     Indication: Blood pressure abnormal
     Dosage: 25 MILLIGRAM, BID
     Route: 065
  8. ELIQUIS [Concomitant]
     Active Substance: APIXABAN
     Indication: Pulmonary embolism
     Dosage: 5 MILLIGRAM, BID
     Route: 065
     Dates: start: 202301
  9. METFORMIN [Concomitant]
     Active Substance: METFORMIN HYDROCHLORIDE
     Indication: Diabetes mellitus
     Dosage: 500 MILLIGRAM, BID
     Route: 065

REACTIONS (5)
  - Intentional product use issue [Unknown]
  - Wrong technique in product usage process [Unknown]
  - Drug ineffective [Unknown]
  - Product solubility abnormal [Unknown]
  - Product physical issue [Unknown]
